FAERS Safety Report 5695849-1 (Version None)
Quarter: 2008Q2

REPORT INFORMATION
  Report Type: 
  Country: None (occurrence: None)
  Receive Date: 20080407
  Receipt Date: 20080326
  Transmission Date: 20081010
  Serious: Yes (Hospitalization, Other)
  Sender: FDA-Public Use
  Company Number: US-ROCHE-479474

PATIENT
  Sex: Male
  Weight: 99.8 kg

DRUGS (1)
  1. ACCUTANE [Suspect]
     Indication: ACNE
     Route: 048
     Dates: start: 19960315, end: 19960801

REACTIONS (22)
  - ANAEMIA [None]
  - ANOREXIA [None]
  - ASTHMA [None]
  - COLITIS [None]
  - COLITIS ULCERATIVE [None]
  - CROHN'S DISEASE [None]
  - DEHYDRATION [None]
  - EMOTIONAL DISTRESS [None]
  - FOLLICULITIS [None]
  - GASTROINTESTINAL DISORDER [None]
  - HORDEOLUM [None]
  - INFLAMMATORY BOWEL DISEASE [None]
  - INTERNAL HERNIA [None]
  - INTESTINAL OBSTRUCTION [None]
  - JOINT DISLOCATION [None]
  - LARGE INTESTINE PERFORATION [None]
  - MALNUTRITION [None]
  - PELVIC SEPSIS [None]
  - PERIRECTAL ABSCESS [None]
  - RECTAL ABSCESS [None]
  - VOLVULUS OF SMALL BOWEL [None]
  - WEIGHT DECREASED [None]
